FAERS Safety Report 4530854-X (Version None)
Quarter: 2004Q4

REPORT INFORMATION
  Report Type: 
  Country: None (occurrence: None)
  Receive Date: 20041217
  Receipt Date: 20041125
  Transmission Date: 20050328
  Serious: Yes (Hospitalization)
  Sender: FDA-Public Use
  Company Number: JP-MERCK-0411USA04066

PATIENT
  Age: 46 Year
  Sex: Male
  Weight: 52 kg

DRUGS (8)
  1. SINGULAIR [Suspect]
     Indication: ASTHMA
     Route: 048
     Dates: start: 20041108, end: 20041118
  2. GATIFLOXACIN [Suspect]
     Indication: ACUTE SINUSITIS
     Route: 048
     Dates: start: 20041108, end: 20041115
  3. CARBOCYSTEINE [Concomitant]
     Indication: ACUTE SINUSITIS
     Route: 048
     Dates: start: 20041108, end: 20041119
  4. AMBROXOL HYDROCHLORIDE [Concomitant]
     Indication: ACUTE SINUSITIS
     Route: 048
     Dates: start: 20041108, end: 20041119
  5. BECLOMETHASONE DIPROPIONATE [Concomitant]
     Indication: ASTHMA
     Route: 055
     Dates: start: 20041108
  6. GUANABENZ ACETATE [Concomitant]
     Indication: HYPERTENSION
     Route: 048
     Dates: start: 20040401, end: 20041119
  7. ZYLORIC [Concomitant]
     Indication: HYPERURICAEMIA
     Route: 048
     Dates: start: 20041015, end: 20041118
  8. CLARITHROMYCIN [Concomitant]
     Indication: ACUTE SINUSITIS
     Route: 048
     Dates: start: 20041102, end: 20041107

REACTIONS (6)
  - ABDOMINAL PAIN [None]
  - ALLERGIC GRANULOMATOUS ANGIITIS [None]
  - DIARRHOEA [None]
  - DYSPNOEA [None]
  - HYPOAESTHESIA [None]
  - RESPIRATORY FAILURE [None]
